FAERS Safety Report 12968704 (Version 1)
Quarter: 2016Q4

REPORT INFORMATION
  Report Type: Spontaneous
  Country: US (occurrence: US)
  Receive Date: 20161123
  Receipt Date: 20161123
  Transmission Date: 20170207
  Serious: Yes (Disabling)
  Sender: FDA-Public Use
  Company Number: None

PATIENT
  Age: 80 Year
  Sex: Male
  Weight: 74.84 kg

DRUGS (8)
  1. ALPRAZOLAM. [Concomitant]
     Active Substance: ALPRAZOLAM
  2. GLUCOSAMINE [Concomitant]
     Active Substance: GLUCOSAMINE
  3. VITAMIN B12 [Concomitant]
     Active Substance: CYANOCOBALAMIN
  4. VITAMIN C [Concomitant]
     Active Substance: ASCORBIC ACID
  5. LUNG CAPS FOR LONG HEALTH [Concomitant]
  6. MILK THISTLE [Concomitant]
     Active Substance: MILK THISTLE
  7. LEVOFLOXACIN 750 MG TABS [Suspect]
     Active Substance: LEVOFLOXACIN
     Indication: PNEUMONIA
     Route: 048
     Dates: start: 20161015, end: 20161016
  8. POWDERED VEGETABLE + FRUIT EXTRACTS [Concomitant]

REACTIONS (6)
  - Headache [None]
  - Dizziness [None]
  - Pneumonia [None]
  - Confusional state [None]
  - Balance disorder [None]
  - Arthralgia [None]

NARRATIVE: CASE EVENT DATE: 20161017
